FAERS Safety Report 14519291 (Version 1)
Quarter: 2018Q1

REPORT INFORMATION
  Report Type: Spontaneous
  Country: GB (occurrence: GB)
  Receive Date: 20180212
  Receipt Date: 20180212
  Transmission Date: 20180509
  Serious: Yes (Other)
  Sender: FDA-Public Use
  Company Number: GB-PFIZER INC-2018056302

PATIENT
  Age: 83 Year
  Sex: Female

DRUGS (4)
  1. CO-AMOXICLAV /01000301/ [Concomitant]
     Active Substance: AMOXICILLIN\CLAVULANATE POTASSIUM
     Indication: UROSEPSIS
     Dosage: UNK
  2. TAZOCIN [Suspect]
     Active Substance: PIPERACILLIN SODIUM\TAZOBACTAM SODIUM
     Indication: UROSEPSIS
     Dosage: UNK
     Route: 042
     Dates: start: 20170921
  3. TEMOCILLIN [Concomitant]
     Active Substance: TEMOCILLIN
     Indication: UROSEPSIS
     Dosage: UNK
  4. GENTAMICIN. [Concomitant]
     Active Substance: GENTAMICIN
     Indication: UROSEPSIS
     Dosage: UNK
     Dates: start: 20170922

REACTIONS (4)
  - Wheezing [Recovered/Resolved]
  - Rash [Unknown]
  - Chest discomfort [Recovered/Resolved]
  - Contraindicated product administered [Recovered/Resolved]

NARRATIVE: CASE EVENT DATE: 20170923
